FAERS Safety Report 16825772 (Version 2)
Quarter: 2019Q3

REPORT INFORMATION
  Report Type: Spontaneous
  Country: US (occurrence: US)
  Receive Date: 20190919
  Receipt Date: 20190927
  Transmission Date: 20191005
  Serious: Yes (Hospitalization, Other)
  Sender: FDA-Public Use
  Company Number: US-AUROBINDO-AUR-APL-2019-059102

PATIENT
  Age: 58 Year
  Sex: Male

DRUGS (2)
  1. TRIMETHOPRIM+SULFAMETHOXAZOLE [Suspect]
     Active Substance: SULFAMETHOXAZOLE\TRIMETHOPRIM
     Indication: CELLULITIS
     Dosage: UNK
     Route: 065
  2. MUPIROCIN. [Concomitant]
     Active Substance: MUPIROCIN
     Indication: CELLULITIS
     Dosage: UNK
     Route: 061

REACTIONS (1)
  - Acute generalised exanthematous pustulosis [Recovered/Resolved]
